FAERS Safety Report 4716245-7 (Version None)
Quarter: 2005Q2

REPORT INFORMATION
  Report Type: 
  Country: None (occurrence: None)
  Receive Date: 20050630
  Receipt Date: 20050211
  Transmission Date: 20051028
  Serious: Yes (Hospitalization)
  Sender: FDA-Public Use
  Company Number: US_001052538

PATIENT
  Age: 63 Year
  Sex: Female

DRUGS (8)
  1. LENTE ILETIN (BEEF-PORK) INSULIN ZINC [Suspect]
     Indication: DIABETES MELLITUS
     Dates: start: 19910101, end: 20001001
  2. REGULAR ILETIN II [Suspect]
     Indication: DIABETES MELLITUS
     Dates: start: 19910101, end: 20001001
  3. HUMULIN-HUMAN INSULIN(RDNA) UNKNOWN FORMULATION (HU [Suspect]
     Indication: DIABETES MELLITUS
     Dates: start: 19910101, end: 19910101
  4. HUMALOG [Suspect]
     Indication: DIABETES MELLITUS
     Dates: start: 20030101
  5. HUMULIN R [Suspect]
     Indication: DIABETES MELLITUS
  6. HUMULIN L [Suspect]
     Indication: DIABETES MELLITUS
  7. INSULIN [Suspect]
     Indication: DIABETES MELLITUS
  8. LANTUS [Concomitant]

REACTIONS (11)
  - AMNESIA [None]
  - BLOOD GLUCOSE DECREASED [None]
  - CHEST PAIN [None]
  - COUGH [None]
  - HIATUS HERNIA [None]
  - HYPOGLYCAEMIA [None]
  - INJECTION SITE PRURITUS [None]
  - INJECTION SITE SWELLING [None]
  - RASH [None]
  - TACHYCARDIA [None]
  - WEIGHT INCREASED [None]
